FAERS Safety Report 8983820 (Version 1)
Quarter: 2012Q4

REPORT INFORMATION
  Report Type: 
  Country: US (occurrence: US)
  Receive Date: 20121224
  Receipt Date: 20121224
  Transmission Date: 20130627
  Serious: Yes (Other)
  Sender: FDA-Public Use
  Company Number: US-ROCHE-1171608

PATIENT
  Sex: Female

DRUGS (2)
  1. VALIUM [Suspect]
     Indication: ANXIETY
     Route: 065
  2. DIAZEPAM [Suspect]
     Indication: ANXIETY
     Route: 065

REACTIONS (3)
  - Basal cell carcinoma [Unknown]
  - Withdrawal syndrome [Unknown]
  - Medication error [Unknown]
